FAERS Safety Report 17308175 (Version 1)
Quarter: 2020Q1

REPORT INFORMATION
  Report Type: Spontaneous
  Country: CZ (occurrence: CZ)
  Receive Date: 20200123
  Receipt Date: 20200123
  Transmission Date: 20200409
  Serious: Yes (Life-Threatening, Other)
  Sender: FDA-Public Use
  Company Number: CZ-BAUSCH-BL-2020-001519

PATIENT
  Age: 82 Year
  Sex: Male

DRUGS (12)
  1. GEMCITABINE. [Suspect]
     Active Substance: GEMCITABINE
     Indication: MANTLE CELL LYMPHOMA
     Dosage: R?-GD THERAPY
     Route: 065
  2. BENDAMUSTINE [Suspect]
     Active Substance: BENDAMUSTINE
     Dosage: 2 CYCLES OF R-BAC500
     Route: 065
  3. RITUXIMAB. [Suspect]
     Active Substance: RITUXIMAB
     Dosage: SECOND CYCLE; R-CYTARABINE
     Route: 065
  4. RITUXIMAB. [Suspect]
     Active Substance: RITUXIMAB
     Dosage: R-GD
     Route: 065
  5. RITUXIMAB. [Suspect]
     Active Substance: RITUXIMAB
     Dosage: 2 CYCLES OF R-BAC500
     Route: 065
  6. DEXAMETHASONE. [Suspect]
     Active Substance: DEXAMETHASONE
     Indication: MANTLE CELL LYMPHOMA
     Dosage: R?-GD THERAPY
     Route: 065
  7. RITUXIMAB. [Suspect]
     Active Substance: RITUXIMAB
     Indication: MANTLE CELL LYMPHOMA
     Dosage: FIRST CYCLE; R-MINICHOP
     Route: 065
  8. RITUXIMAB. [Suspect]
     Active Substance: RITUXIMAB
     Indication: PRODUCT USE IN UNAPPROVED INDICATION
     Dosage: 2 CYCLES OF R-BAC500
     Route: 065
  9. IBRUTINIB [Suspect]
     Active Substance: IBRUTINIB
     Indication: MANTLE CELL LYMPHOMA
     Dosage: UNK
     Route: 065
  10. BENDAMUSTINE [Suspect]
     Active Substance: BENDAMUSTINE
     Indication: MANTLE CELL LYMPHOMA
     Dosage: 2 CYCLES OF R-BAC500
     Route: 065
  11. CYTARABINE. [Suspect]
     Active Substance: CYTARABINE
     Indication: MANTLE CELL LYMPHOMA
     Dosage: SECOND CYCLE; R-CYTARABINE
     Route: 065
  12. CHOP [Suspect]
     Active Substance: CYCLOPHOSPHAMIDE\DOXORUBICIN\PREDNISONE\VINCRISTINE
     Indication: MANTLE CELL LYMPHOMA
     Dosage: FIRST CYCLE; R-MINICHOP
     Route: 065

REACTIONS (9)
  - Disease progression [Unknown]
  - Product use in unapproved indication [Unknown]
  - Splenomegaly [Unknown]
  - Renal failure [Unknown]
  - Mantle cell lymphoma [Unknown]
  - Diabetic metabolic decompensation [Unknown]
  - Drug intolerance [Unknown]
  - Lymphocytosis [Unknown]
  - Neutropenia [Unknown]
